FAERS Safety Report 8901771 (Version 1)
Quarter: 2012Q4

REPORT INFORMATION
  Report Type: Spontaneous
  Country: NZ (occurrence: None)
  Receive Date: 20121101
  Receipt Date: 20121101
  Transmission Date: 20130627
  Serious: Yes (Life-Threatening, Other)
  Sender: FDA-Public Use
  Company Number: 2012RR-61046

PATIENT
  Age: 3 Year
  Sex: Male

DRUGS (1)
  1. PARACETAMOL [Suspect]
     Indication: DRUG USE FOR UNKNOWN INDICATION

REACTIONS (3)
  - Hepatic failure [None]
  - Drug administration error [None]
  - Incorrect dose administered [None]
